FAERS Safety Report 11771843 (Version 3)
Quarter: 2016Q1

REPORT INFORMATION
  Report Type: Spontaneous
  Country: US (occurrence: US)
  Receive Date: 20151124
  Receipt Date: 20160229
  Transmission Date: 20160525
  Serious: No
  Sender: FDA-Public Use
  Company Number: US-PFIZER INC-2015388166

PATIENT
  Age: 57 Year
  Sex: Male
  Weight: 64 kg

DRUGS (1)
  1. ADVIL [Suspect]
     Active Substance: IBUPROFEN
     Dosage: 400 MG, DAILY (IN THE MORNING)

REACTIONS (5)
  - Product physical issue [Unknown]
  - Poor quality drug administered [Unknown]
  - Product taste abnormal [Unknown]
  - Dysgeusia [Unknown]
  - Gastrointestinal disorder [Unknown]
